FAERS Safety Report 19063212 (Version 3)
Quarter: 2021Q2

REPORT INFORMATION
  Report Type: Report from Study
  Country: CA (occurrence: CA)
  Receive Date: 20210326
  Receipt Date: 20210504
  Transmission Date: 20210717
  Serious: Yes (Hospitalization, Other)
  Sender: FDA-Public Use
  Company Number: CA-REGENERON PHARMACEUTICALS, INC.-2021-36121

PATIENT

DRUGS (1)
  1. EYLEA [Suspect]
     Active Substance: AFLIBERCEPT
     Indication: DIABETIC RETINAL OEDEMA
     Dosage: 1 DF, ONCE (OD)
     Route: 031
     Dates: start: 20210318

REACTIONS (3)
  - Eye haemorrhage [Unknown]
  - Cataract [Unknown]
  - Blindness [Unknown]

NARRATIVE: CASE EVENT DATE: 20210319
